FAERS Safety Report 8395935-1 (Version None)
Quarter: 2012Q2

REPORT INFORMATION
  Report Type: 
  Country: None (occurrence: None)
  Receive Date: 20120530
  Receipt Date: 20120528
  Transmission Date: 20120825
  Serious: Yes (Death, Hospitalization)
  Sender: FDA-Public Use
  Company Number: PHHY2012BR045865

PATIENT
  Sex: Male

DRUGS (2)
  1. PAQUETA [Concomitant]
     Indication: ANTICACHECTIC THERAPY
     Dosage: UNK UKN, UNK
  2. DIOVAN HCT [Suspect]
     Indication: HYPERTENSION
     Dosage: 1 DF (UNK MG), QD
     Route: 048

REACTIONS (2)
  - PROCEDURAL COMPLICATION [None]
  - INTESTINAL POLYP [None]
